FAERS Safety Report 24081209 (Version 1)
Quarter: 2024Q3

REPORT INFORMATION
  Report Type: Spontaneous
  Country: US (occurrence: US)
  Receive Date: 20240711
  Receipt Date: 20240711
  Transmission Date: 20241016
  Serious: No
  Sender: KRAMER LABORATORIES
  Company Number: US-KRAMERLABS-2024-US-025228

PATIENT
  Sex: Male

DRUGS (1)
  1. NIZORAL A-D [Suspect]
     Active Substance: KETOCONAZOLE
     Indication: Product used for unknown indication
     Dosage: EVERY 3-4 DAYS
     Route: 061
     Dates: start: 202402, end: 2024

REACTIONS (4)
  - Dandruff [Recovered/Resolved]
  - Condition aggravated [Recovered/Resolved]
  - Pruritus [Unknown]
  - Drug ineffective [Recovered/Resolved]

NARRATIVE: CASE EVENT DATE: 20240201
